FAERS Safety Report 24458865 (Version 1)
Quarter: 2024Q4

REPORT INFORMATION
  Report Type: Spontaneous
  Country: US (occurrence: None)
  Receive Date: 20241017
  Receipt Date: 20241017
  Transmission Date: 20250115
  Serious: No
  Sender: Public
  Company Number: None

PATIENT
  Age: 85 Year
  Sex: Male

DRUGS (2)
  1. ISOSORBIDE DINITRATE [Suspect]
     Active Substance: ISOSORBIDE DINITRATE
     Indication: Hypertension
     Dates: start: 20240402, end: 20240408
  2. HYDRALAZINE HYDRCHLORIDE [Suspect]
     Active Substance: HYDRALAZINE HYDROCHLORIDE
     Indication: Hypertension
     Dates: start: 20240402, end: 20240408

REACTIONS (2)
  - Face oedema [None]
  - Conjunctival oedema [None]

NARRATIVE: CASE EVENT DATE: 20240408
